FAERS Safety Report 5466322-0 (Version None)
Quarter: 2007Q3

REPORT INFORMATION
  Report Type: 
  Country: None (occurrence: None)
  Receive Date: 20070920
  Receipt Date: 20070905
  Transmission Date: 20080115
  Serious: Yes (Hospitalization)
  Sender: FDA-Public Use
  Company Number: 2007001067

PATIENT
  Age: 73 Year
  Sex: Female
  Weight: 52.2 kg

DRUGS (22)
  1. TARCEVA [Suspect]
     Indication: NON-SMALL CELL LUNG CANCER
     Dosage: ORAL
     Route: 048
  2. BEVACIZUMAB            (INJECTION FOR INFUSION) [Suspect]
     Dosage: 15 MG/KG, INTRAVENOUS
     Route: 042
     Dates: start: 20070223
  3. BEVACIZUMAB            (INJECTION FOR INFUSION) [Suspect]
  4. BEVACIZUMAB  (INJECTION FOR INFUSION) [Suspect]
  5. ASPIRIN [Concomitant]
  6. LEVOXYL [Concomitant]
  7. LIPITOR [Concomitant]
  8. MYLANTA        ( MYLANTA ) [Concomitant]
  9. COMPAZINE [Concomitant]
  10. COUGH DROPS [Concomitant]
  11. SODIUM CHLORIDE [Concomitant]
  12. OMEGA-3 (OMEGA-3 TRIGLYCERIDES) [Concomitant]
  13. TESSALON [Concomitant]
  14. LOMOTIL [Concomitant]
  15. BENADRYL [Concomitant]
  16. ACETAMINOPHEN [Concomitant]
  17. IMODIUM [Concomitant]
  18. BONIVA [Concomitant]
  19. VITAMIN D [Concomitant]
  20. CALCIUM (CALCIUM) [Concomitant]
  21. TOPROL-XL [Concomitant]
  22. AVALIDE (KARVEA  HCT) [Concomitant]

REACTIONS (8)
  - ACQUIRED DIAPHRAGMATIC EVENTRATION [None]
  - ALANINE AMINOTRANSFERASE INCREASED [None]
  - ASPARTATE AMINOTRANSFERASE INCREASED [None]
  - BLOOD ALKALINE PHOSPHATASE INCREASED [None]
  - BLOOD CREATINE PHOSPHOKINASE MB INCREASED [None]
  - BLOOD SODIUM DECREASED [None]
  - CHEST PAIN [None]
  - GASTROOESOPHAGEAL REFLUX DISEASE [None]
